FAERS Safety Report 9299376 (Version 2)
Quarter: 2013Q4

REPORT INFORMATION
  Report Type: Spontaneous
  Country: US (occurrence: US)
  Receive Date: 20130520
  Receipt Date: 20131108
  Transmission Date: 20140711
  Serious: Yes (Hospitalization, Other)
  Sender: FDA-Public Use
  Company Number: US-B.I. PHARMACEUTICALS,INC./RIDGEFIELD-2013-BI-13767BP

PATIENT
  Age: 71 Year
  Sex: Female
  Weight: 61.68 kg

DRUGS (22)
  1. PRADAXA [Suspect]
     Indication: ANTICOAGULANT THERAPY
     Dates: start: 20110405, end: 20120618
  2. PRADAXA [Suspect]
     Indication: CEREBROVASCULAR ACCIDENT PROPHYLAXIS
  3. VITAMIN D2 [Concomitant]
     Dosage: 7.1429 U
     Route: 048
  4. AMITRIPTYLINE HCL [Concomitant]
     Dosage: 10 ML
     Route: 048
  5. VENTOLIN HFA [Concomitant]
     Route: 055
  6. VERAPAMIL HCL [Concomitant]
     Dosage: 240 ML
     Route: 048
  7. ASPIRIN [Concomitant]
     Dosage: 81 ML
     Route: 048
  8. NITROSTAT [Concomitant]
     Dosage: 0.4 ML
     Route: 060
  9. MIACALCIN [Concomitant]
     Route: 045
  10. CALCIUM [Concomitant]
     Route: 048
  11. MULTIVITAMIN [Concomitant]
     Route: 048
  12. FLEXERIL [Concomitant]
     Dosage: 10 MG
     Route: 048
  13. LISINOPRIL [Concomitant]
     Dosage: 10 MG
     Route: 048
  14. SYNTHROID [Concomitant]
     Dosage: 50 MCG
     Route: 048
  15. PLAVIX [Concomitant]
     Dosage: 150 MG
     Route: 048
  16. FUROSEMIDE [Concomitant]
     Dosage: 20 MG
     Route: 048
  17. FOSAMAX [Concomitant]
     Dosage: 10 MG
     Route: 048
  18. SYMBICORT [Concomitant]
  19. TOPROL XL [Concomitant]
     Dosage: 42.8571 MG
     Route: 048
  20. ALDACTONE [Concomitant]
     Dosage: 3.5714 MG
     Route: 048
  21. POTASSIUM CHLORIDE [Concomitant]
     Dosage: 120 MEQ
     Route: 048
  22. TRIAMCINOLONE ACETONIDE 0.1% [Concomitant]
     Route: 061

REACTIONS (4)
  - Gastrointestinal haemorrhage [Unknown]
  - Cardiac arrest [Recovered/Resolved]
  - Respiratory failure [Recovered/Resolved]
  - Anaemia [Unknown]
